FAERS Safety Report 7652519-8 (Version None)
Quarter: 2011Q3

REPORT INFORMATION
  Report Type: 
  Country: None (occurrence: None)
  Receive Date: 20110801
  Receipt Date: 20110801
  Transmission Date: 20111222
  Serious: Yes (Other)
  Sender: FDA-Public Use
  Company Number: None

PATIENT
  Age: 59 Year
  Sex: Female
  Weight: 59.4212 kg

DRUGS (1)
  1. LETROZOLE [Suspect]
     Indication: BREAST CANCER
     Dosage: 2.5MG DAILY

REACTIONS (4)
  - PRODUCT SUBSTITUTION ISSUE [None]
  - NAUSEA [None]
  - ARTHRALGIA [None]
  - VOMITING [None]
